FAERS Safety Report 22344559 (Version 3)
Quarter: 2023Q2

REPORT INFORMATION
  Report Type: Spontaneous
  Country: BR (occurrence: None)
  Receive Date: 20230519
  Receipt Date: 20230626
  Transmission Date: 20230721
  Serious: Yes (Death, Other)
  Sender: FDA-Public Use
  Company Number: 2023A116038

PATIENT
  Age: 24593 Day
  Sex: Male
  Weight: 100 kg

DRUGS (1)
  1. CALQUENCE [Suspect]
     Active Substance: ACALABRUTINIB
     Indication: Mantle cell lymphoma
     Dosage: 1 TABLET IN THE MORNING AND 1 TABLET AT NIGHT
     Route: 048
     Dates: start: 202205, end: 20230129

REACTIONS (4)
  - Malignant neoplasm progression [Fatal]
  - Septic shock [Fatal]
  - Pneumonia bacterial [Fatal]
  - Cough [Unknown]

NARRATIVE: CASE EVENT DATE: 20221201
